FAERS Safety Report 8811831 (Version 2)
Quarter: 2012Q4

REPORT INFORMATION
  Report Type: 
  Country: JP (occurrence: JP)
  Receive Date: 20120927
  Receipt Date: 20121017
  Transmission Date: 20130627
  Serious: Yes (Hospitalization)
  Sender: FDA-Public Use
  Company Number: JP-GLAXOSMITHKLINE-B0828736A

PATIENT
  Age: 26 Year
  Sex: Male

DRUGS (5)
  1. SAMTIREL [Suspect]
     Indication: PNEUMOCYSTIS JIROVECI PNEUMONIA
     Dosage: 750ML Twice per day
     Route: 048
     Dates: start: 20120628, end: 20120726
  2. ZITHROMAC [Concomitant]
     Indication: MYCOBACTERIUM AVIUM COMPLEX INFECTION
     Dosage: 600MG Per day
     Route: 048
     Dates: start: 20120627
  3. ESANBUTOL [Concomitant]
     Indication: MYCOBACTERIUM AVIUM COMPLEX INFECTION
     Dosage: 750MG Per day
     Route: 048
     Dates: start: 20120627
  4. CIPROXAN [Concomitant]
     Indication: MYCOBACTERIUM AVIUM COMPLEX INFECTION
     Dosage: 200MG Three times per day
     Route: 048
     Dates: start: 20120627
  5. FLUCONAZOLE [Concomitant]
     Indication: MENINGITIS CRYPTOCOCCAL
     Dosage: 600MG Per day
     Route: 048
     Dates: start: 20120625

REACTIONS (9)
  - Stevens-Johnson syndrome [Recovering/Resolving]
  - Erythema [Unknown]
  - Erythema [Unknown]
  - Oral mucosal eruption [Unknown]
  - Eosinophil count increased [Unknown]
  - Liver disorder [Unknown]
  - Petechiae [Unknown]
  - Oral mucosal erythema [Unknown]
  - Pyrexia [Unknown]
